FAERS Safety Report 5390471-9 (Version None)
Quarter: 2007Q3

REPORT INFORMATION
  Report Type: 
  Country: None (occurrence: None)
  Receive Date: 20070718
  Receipt Date: 20061122
  Transmission Date: 20080115
  Serious: No
  Sender: FDA-Public Use
  Company Number: US-KINGPHARMUSA00001-K200601504

PATIENT

DRUGS (4)
  1. LEVOXYL [Suspect]
     Indication: HYPOTHYROIDISM
     Dosage: 88 MCG, QD
     Route: 048
  2. LISINOPRIL [Suspect]
     Indication: HYPERTENSION
     Dosage: 5 MG, QD
     Route: 048
     Dates: start: 20051101
  3. TORSEMIDE [Suspect]
     Indication: DIURETIC THERAPY
     Dosage: 20 MG, QD
     Route: 048
     Dates: start: 20040101
  4. ALBUTEROL [Suspect]
     Indication: ASTHMA
     Dosage: 2 PUFFS 2-3 TIMES PER DAY, PRN

REACTIONS (2)
  - FLUID RETENTION [None]
  - URTICARIA [None]
